FAERS Safety Report 13349763 (Version 1)
Quarter: 2017Q1

REPORT INFORMATION
  Report Type: Spontaneous
  Country: US (occurrence: US)
  Receive Date: 20170320
  Receipt Date: 20170320
  Transmission Date: 20170429
  Serious: Yes (Hospitalization)
  Sender: FDA-Public Use
  Company Number: US-SA-2017SA041767

PATIENT
  Age: 63 Year
  Sex: Male

DRUGS (2)
  1. BCG FOR IMMUNOTHERAPY [Suspect]
     Active Substance: BACILLUS CALMETTE-GUERIN ANTIGEN, UNSPECIFIED SUBSTRAIN
     Indication: BLADDER CANCER
     Route: 043
  2. BCG FOR IMMUNOTHERAPY [Suspect]
     Active Substance: BACILLUS CALMETTE-GUERIN ANTIGEN, UNSPECIFIED SUBSTRAIN
     Indication: BLADDER CANCER
     Route: 043

REACTIONS (13)
  - Prealbumin decreased [Recovering/Resolving]
  - Abnormal loss of weight [Recovered/Resolved]
  - Chills [Recovered/Resolved]
  - Peripheral artery aneurysm [Recovering/Resolving]
  - Night sweats [Recovered/Resolved]
  - Femoral artery aneurysm [Recovering/Resolving]
  - Infective aneurysm [Recovering/Resolving]
  - Disseminated Bacillus Calmette-Guerin infection [Recovering/Resolving]
  - Aneurysm ruptured [Recovering/Resolving]
  - Groin pain [Recovering/Resolving]
  - Vascular pseudoaneurysm [Recovering/Resolving]
  - Pyrexia [Recovered/Resolved]
  - Pain in extremity [Recovering/Resolving]
